FAERS Safety Report 5361250-3 (Version None)
Quarter: 2007Q2

REPORT INFORMATION
  Report Type: 
  Country: None (occurrence: None)
  Receive Date: 20070530
  Receipt Date: 20070309
  Transmission Date: 20071010
  Serious: No
  Sender: FDA-Public Use
  Company Number: 2006PV026135

PATIENT
  Age: 57 Year
  Sex: Male

DRUGS (5)
  1. BYETTA [Suspect]
     Indication: DIABETES MELLITUS NON-INSULIN-DEPENDENT
     Dosage: 10 MCG;BID;SC ; 5 MCG;BID;SC
     Route: 058
     Dates: start: 20060508, end: 20060101
  2. BYETTA [Suspect]
     Indication: DIABETES MELLITUS NON-INSULIN-DEPENDENT
     Dosage: 10 MCG;BID;SC ; 5 MCG;BID;SC
     Route: 058
     Dates: start: 20060101
  3. GLIPIZIDE [Concomitant]
  4. ANTIDEPRESSANT [Concomitant]
  5. PRINIVIL [Concomitant]

REACTIONS (9)
  - BLOOD GLUCOSE DECREASED [None]
  - ERECTILE DYSFUNCTION [None]
  - INCORRECT DOSE ADMINISTERED [None]
  - LIP DISCOLOURATION [None]
  - LIP SWELLING [None]
  - NAUSEA [None]
  - RASH ERYTHEMATOUS [None]
  - STOMACH DISCOMFORT [None]
  - VOMITING [None]
